FAERS Safety Report 4466467-8 (Version None)
Quarter: 2004Q4

REPORT INFORMATION
  Report Type: 
  Country: None (occurrence: None)
  Receive Date: 20041005
  Receipt Date: 20040928
  Transmission Date: 20050328
  Serious: Yes (Life-Threatening, Hospitalization)
  Sender: FDA-Public Use
  Company Number: US-MERCK-0409USA02449

PATIENT
  Age: 83 Year
  Sex: Male

DRUGS (5)
  1. LEXAPRO [Concomitant]
     Route: 065
  2. PROSCAR [Concomitant]
     Route: 048
  3. FLOMAX [Concomitant]
     Route: 065
  4. VIOXX [Suspect]
     Indication: ARTHRITIS
     Route: 048
     Dates: start: 20010323, end: 20040930
  5. ZOCOR [Concomitant]
     Route: 048

REACTIONS (1)
  - MYOCARDIAL INFARCTION [None]
